FAERS Safety Report 4708122-2 (Version None)
Quarter: 2005Q3

REPORT INFORMATION
  Report Type: 
  Country: None (occurrence: None)
  Receive Date: 20050707
  Receipt Date: 20050629
  Transmission Date: 20060218
  Serious: Yes (Hospitalization, Other)
  Sender: FDA-Public Use
  Company Number: 2005SE03796

PATIENT
  Age: 56 Year
  Sex: Male

DRUGS (4)
  1. PARAPRES [Suspect]
     Indication: ESSENTIAL HYPERTENSION
     Route: 048
     Dates: end: 20050405
  2. CHLORTHALIDONE [Suspect]
     Indication: ESSENTIAL HYPERTENSION
     Route: 048
     Dates: end: 20050405
  3. MONTELUKAST SODIUM [Concomitant]
     Route: 055
  4. SYMBICORT TURBUHALER [Concomitant]
     Route: 055

REACTIONS (5)
  - BRADYCARDIA [None]
  - DIZZINESS [None]
  - HYPERHIDROSIS [None]
  - HYPOKALAEMIA [None]
  - HYPOTENSION [None]
